FAERS Safety Report 20607455 (Version 1)
Quarter: 2022Q1

REPORT INFORMATION
  Report Type: Spontaneous
  Country: US (occurrence: None)
  Receive Date: 20220316
  Receipt Date: 20220316
  Transmission Date: 20220423
  Serious: Yes (Hospitalization)
  Sender: FDA-Public Use
  Company Number: None

PATIENT
  Age: 89 Year
  Sex: Female

DRUGS (1)
  1. CAPECITABINE [Suspect]
     Active Substance: CAPECITABINE
     Indication: Breast cancer female
     Dosage: FREQUENCY : TWICE A DAY;?
     Route: 048
     Dates: start: 20220304

REACTIONS (5)
  - Atrial fibrillation [None]
  - Asthenia [None]
  - Fatigue [None]
  - Dyspnoea [None]
  - Therapy interrupted [None]

NARRATIVE: CASE EVENT DATE: 20220315
